FAERS Safety Report 4432438-0 (Version None)
Quarter: 2004Q3

REPORT INFORMATION
  Report Type: 
  Country: None (occurrence: None)
  Receive Date: 20040825
  Receipt Date: 20040818
  Transmission Date: 20050211
  Serious: Yes (Other)
  Sender: FDA-Public Use
  Company Number: NL-BRISTOL-MYERS SQUIBB COMPANY-12674230

PATIENT
  Age: 44 Year
  Sex: Female

DRUGS (6)
  1. CISPLATIN [Suspect]
     Indication: OVARIAN CANCER
     Route: 042
     Dates: start: 20040326, end: 20040326
  2. PACLITAXEL [Suspect]
     Indication: OVARIAN CANCER
     Route: 042
     Dates: start: 20030326, end: 20040326
  3. DEXAMETHASONE [Suspect]
     Indication: PROPHYLAXIS OF NAUSEA AND VOMITING
     Dates: start: 20040326, end: 20040326
  4. SODIUM CHLORIDE INJ [Concomitant]
     Dates: start: 20040326
  5. PARIET [Concomitant]
     Indication: REFLUX OESOPHAGITIS
     Dates: start: 20040101
  6. MAALOX [Concomitant]
     Indication: PROPHYLAXIS
     Dates: start: 20040426

REACTIONS (1)
  - DIABETES MELLITUS [None]
